FAERS Safety Report 6221838-4 (Version None)
Quarter: 2009Q2

REPORT INFORMATION
  Report Type: 
  Country: None (occurrence: None)
  Receive Date: 20090608
  Receipt Date: 20090525
  Transmission Date: 20091009
  Serious: Yes (Hospitalization)
  Sender: FDA-Public Use
  Company Number: 235825K09USA

PATIENT
  Age: 53 Year
  Sex: Female
  Weight: 110 kg

DRUGS (2)
  1. REBIF [Suspect]
     Indication: MULTIPLE SCLEROSIS
     Dosage: 44 MCG, 3 IN 1 WEEKS, SUBCUTANEOUS
     Route: 058
     Dates: start: 20060101, end: 20090521
  2. HYDROCHLOROTHIAZIDE [Concomitant]

REACTIONS (5)
  - ABDOMINAL PAIN UPPER [None]
  - DIALYSIS [None]
  - LOSS OF CONSCIOUSNESS [None]
  - RENAL FAILURE [None]
  - TYPE 2 DIABETES MELLITUS [None]
